FAERS Safety Report 21558079 (Version 1)
Quarter: 2022Q4

REPORT INFORMATION
  Report Type: Spontaneous
  Country: US (occurrence: US)
  Receive Date: 20221107
  Receipt Date: 20221107
  Transmission Date: 20230113
  Serious: No
  Sender: FDA-Public Use
  Company Number: US-drreddys-SPO/USA/22/0156038

PATIENT
  Age: 32 Year
  Sex: Male

DRUGS (2)
  1. ACCUTANE [Suspect]
     Active Substance: ISOTRETINOIN
     Indication: Product used for unknown indication
     Dosage: RMA ISSUE DATE: 27 JANUARY 2022 09:58:44 AM, 23 MARCH 2022 11:09:06 AM, 20 APRIL 2022 02:20:49 PM, 2
  2. ACCUTANE [Suspect]
     Active Substance: ISOTRETINOIN
     Dosage: RMA ISSUE DATE: 28 FEBRUARY 2022 12:45:55 PM

REACTIONS (1)
  - Lipids increased [Unknown]
